FAERS Safety Report 5990024-5 (Version None)
Quarter: 2008Q4

REPORT INFORMATION
  Report Type: 
  Country: None (occurrence: None)
  Receive Date: 20081209
  Receipt Date: 20081209
  Transmission Date: 20090506
  Serious: Yes (Other)
  Sender: FDA-Public Use
  Company Number: None

PATIENT
  Age: 72 Year
  Sex: Male
  Weight: 62.1882 kg

DRUGS (2)
  1. ETODOLAC [Suspect]
     Indication: INFLAMMATION
     Dosage: 400 MG THREE TIMES DAILY PO
     Route: 048
     Dates: start: 20060201, end: 20080701
  2. ETODOLAC [Suspect]
     Indication: PAIN
     Dosage: 400 MG THREE TIMES DAILY PO
     Route: 048
     Dates: start: 20060201, end: 20080701

REACTIONS (1)
  - HAEMOGLOBIN DECREASED [None]
